FAERS Safety Report 21003284 (Version 1)
Quarter: 2022Q2

REPORT INFORMATION
  Report Type: Spontaneous
  Country: US (occurrence: None)
  Receive Date: 20220623
  Receipt Date: 20220623
  Transmission Date: 20220721
  Serious: Yes (Disabling)
  Sender: FDA-Public Use
  Company Number: None

PATIENT
  Age: 78 Year
  Sex: Male
  Weight: 72 kg

DRUGS (1)
  1. NAMZARIC [Suspect]
     Active Substance: DONEPEZIL HYDROCHLORIDE\MEMANTINE HYDROCHLORIDE
     Indication: Dementia
     Dosage: FREQUENCY : AT BEDTIME;?
     Route: 048
     Dates: start: 20220401, end: 20220517

REACTIONS (2)
  - Parkinsonism [None]
  - Anal incontinence [None]

NARRATIVE: CASE EVENT DATE: 20220509
